FAERS Safety Report 19136855 (Version 3)
Quarter: 2021Q3

REPORT INFORMATION
  Report Type: Spontaneous
  Country: US (occurrence: US)
  Receive Date: 20210414
  Receipt Date: 20210908
  Transmission Date: 20211014
  Serious: No
  Sender: FDA-Public Use
  Company Number: US-KARYOPHARM-2021KPT000271

PATIENT

DRUGS (3)
  1. XPOVIO [Suspect]
     Active Substance: SELINEXOR
     Indication: LUNG CARCINOMA CELL TYPE UNSPECIFIED STAGE 0
     Dosage: 80 MG, 2X/WEEK DAYS 1 AND 3
     Route: 048
     Dates: start: 20210218, end: 20210730
  2. OPDIVO [Concomitant]
     Active Substance: NIVOLUMAB
     Indication: PRODUCT USED FOR UNKNOWN INDICATION
  3. DEXAMETHASONE. [Concomitant]
     Active Substance: DEXAMETHASONE
     Indication: ADRENAL DISORDER

REACTIONS (13)
  - Amnesia [Unknown]
  - Decreased appetite [Not Recovered/Not Resolved]
  - Night sweats [Unknown]
  - Off label use [Unknown]
  - Depressed mood [Unknown]
  - Abdominal pain upper [Not Recovered/Not Resolved]
  - Quality of life decreased [Unknown]
  - Asthenia [Unknown]
  - Hypotension [Unknown]
  - Nausea [Recovering/Resolving]
  - Taste disorder [Unknown]
  - Visual impairment [Unknown]
  - Weight decreased [Not Recovered/Not Resolved]

NARRATIVE: CASE EVENT DATE: 2021
